FAERS Safety Report 4526704-8 (Version None)
Quarter: 2004Q4

REPORT INFORMATION
  Report Type: 
  Country: None (occurrence: None)
  Receive Date: 20041214
  Receipt Date: 20041203
  Transmission Date: 20050328
  Serious: Yes (Death)
  Sender: FDA-Public Use
  Company Number: FR-JNJFOC-20041201089

PATIENT
  Age: 60 Year
  Sex: Male

DRUGS (1)
  1. DURAGESIC [Suspect]
     Indication: PAIN
     Route: 062

REACTIONS (3)
  - DRUG INEFFECTIVE [None]
  - RESPIRATORY DEPRESSION [None]
  - TREATMENT NONCOMPLIANCE [None]
